FAERS Safety Report 10026406 (Version 3)
Quarter: 2014Q2

REPORT INFORMATION
  Report Type: Spontaneous
  Country: US (occurrence: US)
  Receive Date: 20140321
  Receipt Date: 20140516
  Transmission Date: 20141212
  Serious: No
  Sender: FDA-Public Use
  Company Number: US-009507513-1403USA008620

PATIENT
  Age: 20 Year
  Sex: Female
  Weight: 58.5 kg

DRUGS (3)
  1. NEXPLANON [Suspect]
     Indication: CONTRACEPTION
     Dosage: 1 DF, UNK, 1 ROD
     Route: 059
     Dates: start: 20131124, end: 20140327
  2. CELEXA [Concomitant]
     Dosage: 40 MG, QD
     Route: 048
  3. MINOCYCLINE HYDROCHLORIDE [Concomitant]

REACTIONS (6)
  - Device breakage [Recovered/Resolved]
  - Implant site swelling [Recovered/Resolved]
  - Implant site bruising [Recovered/Resolved]
  - Implant site pain [Recovered/Resolved]
  - Product quality issue [Unknown]
  - Attention deficit/hyperactivity disorder [Unknown]
